FAERS Safety Report 24740033 (Version 1)
Quarter: 2024Q4

REPORT INFORMATION
  Report Type: Other
  Country: IN (occurrence: IN)
  Receive Date: 20241216
  Receipt Date: 20241216
  Transmission Date: 20250115
  Serious: Yes (Life-Threatening, Other)
  Sender: B BRAUN
  Company Number: IN-B.Braun Medical Inc.-2167216

PATIENT
  Age: 77 Year
  Sex: Female

DRUGS (12)
  1. MANNITOL [Suspect]
     Active Substance: MANNITOL
  2. AMIODARONE [Concomitant]
     Active Substance: AMIODARONE
  3. PROPOFOL [Concomitant]
     Active Substance: PROPOFOL
  4. LIDOCAINE HYDROCHLORIDE [Concomitant]
     Active Substance: LIDOCAINE HYDROCHLORIDE
  5. ESMOLOL [Concomitant]
     Active Substance: ESMOLOL HYDROCHLORIDE
  6. VECURONIUM [Concomitant]
     Active Substance: VECURONIUM BROMIDE
  7. ETOMIDATE [Concomitant]
     Active Substance: ETOMIDATE
  8. FENTANYL [Concomitant]
     Active Substance: FENTANYL
  9. Amlodipine and oral ?hypoglycaemic agents [Concomitant]
  10. WARFARIN [Concomitant]
     Active Substance: WARFARIN
  11. AMILORIDE [Concomitant]
     Active Substance: AMILORIDE
  12. FUROSEMIDE [Concomitant]
     Active Substance: FUROSEMIDE

REACTIONS (2)
  - Atrial fibrillation [Recovered/Resolved]
  - Hypotension [Recovered/Resolved]
